FAERS Safety Report 7035476-7 (Version None)
Quarter: 2010Q4

REPORT INFORMATION
  Report Type: 
  Country: None (occurrence: None)
  Receive Date: 20101008
  Receipt Date: 20101001
  Transmission Date: 20110411
  Serious: Yes (Hospitalization)
  Sender: FDA-Public Use
  Company Number: US-JNJFOC-20101001049

PATIENT
  Age: 73 Year
  Sex: Male
  Weight: 100.02 kg

DRUGS (5)
  1. TYLENOL W/ CODEINE [Suspect]
     Indication: PAIN
     Route: 048
  2. CELEBREX [Suspect]
     Indication: PAIN
     Route: 048
  3. CELEBREX [Suspect]
     Dosage: 2 YEARS AGO
     Route: 048
  4. VIAGRA [Suspect]
     Indication: SEXUAL DYSFUNCTION
     Dosage: AS NEEDED
     Route: 048
  5. OXYCODONE [Suspect]
     Indication: PAIN
     Dosage: 1 PILL EVERY 6 HOURS AS NEEDED
     Route: 048

REACTIONS (2)
  - CONSTIPATION [None]
  - KNEE OPERATION [None]
